FAERS Safety Report 18341713 (Version 3)
Quarter: 2020Q4

REPORT INFORMATION
  Report Type: Spontaneous
  Country: US (occurrence: US)
  Receive Date: 20201005
  Receipt Date: 20201221
  Transmission Date: 20210113
  Serious: No
  Sender: FDA-Public Use
  Company Number: US-GLAXOSMITHKLINE-US2020AMR196006

PATIENT
  Sex: Female

DRUGS (2)
  1. ZEJULA [Suspect]
     Active Substance: NIRAPARIB
     Dosage: 200 MG, QD
     Dates: start: 20200811, end: 20201208
  2. ZEJULA [Suspect]
     Active Substance: NIRAPARIB
     Indication: FALLOPIAN TUBE CANCER
     Dosage: 200 MG, QD
     Dates: start: 20200721

REACTIONS (9)
  - Tumour marker increased [Unknown]
  - Rash [Recovering/Resolving]
  - Blood pressure increased [Not Recovered/Not Resolved]
  - Rash pruritic [Unknown]
  - Constipation [Unknown]
  - Heart rate increased [Not Recovered/Not Resolved]
  - Photosensitivity reaction [Unknown]
  - Stomatitis [Unknown]
  - Dry mouth [Unknown]
